FAERS Safety Report 6872048-9 (Version None)
Quarter: 2010Q3

REPORT INFORMATION
  Report Type: 
  Country: None (occurrence: None)
  Receive Date: 20100723
  Receipt Date: 20100714
  Transmission Date: 20110219
  Serious: Yes (Life-Threatening, Hospitalization, Disabling, Other)
  Sender: FDA-Public Use
  Company Number: US-SANOFI-AVENTIS-A03200607623

PATIENT
  Age: 57 Year
  Sex: Male
  Weight: 94.5 kg

DRUGS (7)
  1. PLAVIX [Suspect]
     Dosage: UNIT DOSE: 75 MG
     Route: 048
     Dates: start: 20050722, end: 20051218
  2. PLAVIX [Suspect]
     Indication: STENT PLACEMENT
     Dosage: UNIT DOSE: 75 MG
     Route: 048
     Dates: start: 20050722, end: 20051218
  3. ASPIRIN [Suspect]
     Route: 048
     Dates: start: 20050701
  4. ASPIRIN [Suspect]
     Indication: STENT PLACEMENT
     Route: 048
     Dates: start: 20050701
  5. LIPITOR [Concomitant]
     Route: 048
  6. ATENOLOL [Concomitant]
     Indication: HYPERTENSION
     Route: 048
     Dates: start: 20050101
  7. ATENOLOL [Concomitant]
     Indication: ARTERIOSCLEROSIS
     Route: 048
     Dates: start: 20050101

REACTIONS (17)
  - BRAIN INJURY [None]
  - DEEP VEIN THROMBOSIS [None]
  - DIPLOPIA [None]
  - DIZZINESS [None]
  - DYSPHAGIA [None]
  - HEADACHE [None]
  - HYDROCEPHALUS [None]
  - JOINT RANGE OF MOTION DECREASED [None]
  - LOSS OF CONSCIOUSNESS [None]
  - MEMORY IMPAIRMENT [None]
  - PAIN IN EXTREMITY [None]
  - PNEUMONIA STAPHYLOCOCCAL [None]
  - RESPIRATORY FAILURE [None]
  - SOMNOLENCE [None]
  - SPEECH DISORDER [None]
  - SUBARACHNOID HAEMORRHAGE [None]
  - VOMITING [None]
